FAERS Safety Report 10869318 (Version 1)
Quarter: 2015Q1

REPORT INFORMATION
  Report Type: Spontaneous
  Country: IN (occurrence: IN)
  Receive Date: 20150226
  Receipt Date: 20150226
  Transmission Date: 20150721
  Serious: Yes (Death, Other)
  Sender: FDA-Public Use
  Company Number: PHHY2015IN019314

PATIENT
  Age: 3 Year
  Sex: Male

DRUGS (3)
  1. BLEOMYCIN [Suspect]
     Active Substance: BLEOMYCIN SULFATE
     Indication: YOLK SAC TUMOUR SITE UNSPECIFIED
     Route: 065
  2. ETOPOSIDE. [Suspect]
     Active Substance: ETOPOSIDE
     Indication: YOLK SAC TUMOUR SITE UNSPECIFIED
     Route: 065
  3. PACLITAXEL. [Suspect]
     Active Substance: PACLITAXEL
     Indication: YOLK SAC TUMOUR SITE UNSPECIFIED
     Route: 065

REACTIONS (2)
  - Respiratory failure [Fatal]
  - Pneumothorax [Unknown]
